FAERS Safety Report 20953344 (Version 3)
Quarter: 2022Q2

REPORT INFORMATION
  Report Type: Report from Study
  Country: US (occurrence: US)
  Receive Date: 20220613
  Receipt Date: 20220620
  Transmission Date: 20220721
  Serious: No
  Sender: FDA-Public Use
  Company Number: US-NOVARTISTESTPH-NVSC2022US135117

PATIENT
  Sex: Female

DRUGS (1)
  1. XIIDRA [Suspect]
     Active Substance: LIFITEGRAST
     Indication: Dry eye
     Dosage: UNK UNK, BID
     Route: 047

REACTIONS (6)
  - Ocular discomfort [Unknown]
  - Eye irritation [Unknown]
  - Eye pain [Unknown]
  - Dry eye [Unknown]
  - Therapeutic product effect delayed [Unknown]
  - Product dose omission issue [Unknown]
